FAERS Safety Report 9974972 (Version 1)
Quarter: 2014Q1

REPORT INFORMATION
  Report Type: Report from Study
  Country: US (occurrence: US)
  Receive Date: 20140306
  Receipt Date: 20140306
  Transmission Date: 20141002
  Serious: No
  Sender: FDA-Public Use
  Company Number: US-ABBVIE-13P-163-1160854-00

PATIENT
  Age: 73 Year
  Sex: Male

DRUGS (6)
  1. HUMIRA [Suspect]
     Indication: RHEUMATOID ARTHRITIS
     Dates: start: 20130809
  2. HIGH BLOOD PRESSURE MEDICATION [Concomitant]
     Indication: HYPERTENSION
  3. TYLENOL [Concomitant]
     Indication: ARTHRITIS
     Dosage: OCCASIONALLY
  4. ZANTAC [Concomitant]
     Indication: GASTRIC DISORDER
  5. ZANTAC [Concomitant]
     Indication: PRODUCT USED FOR UNKNOWN INDICATION
     Dosage: DAILY
  6. PREDNISONE [Concomitant]
     Indication: PRODUCT USED FOR UNKNOWN INDICATION
     Dosage: 25 MG DAILY BUT IS CURRENTLY TAPERED DOWN TO 14 MG DAILY

REACTIONS (1)
  - Injection site pain [Recovering/Resolving]
